FAERS Safety Report 22142669 (Version 1)
Quarter: 2023Q1

REPORT INFORMATION
  Report Type: Report from Study
  Country: US (occurrence: US)
  Receive Date: 20230327
  Receipt Date: 20230327
  Transmission Date: 20230417
  Serious: Yes (Other)
  Sender: FDA-Public Use
  Company Number: US-ABBVIE-4696842

PATIENT
  Age: 60 Year
  Sex: Male
  Weight: 90.718 kg

DRUGS (2)
  1. HUMIRA [Suspect]
     Active Substance: ADALIMUMAB
     Indication: Uveitis
     Dosage: STRENGTH: 40 MG
     Route: 058
     Dates: start: 20210320
  2. SYNTHROID [Concomitant]
     Active Substance: LEVOTHYROXINE SODIUM
     Indication: Thyroid disorder

REACTIONS (3)
  - Eye inflammation [Recovering/Resolving]
  - Cataract [Unknown]
  - Conjunctival bleb [Recovered/Resolved]

NARRATIVE: CASE EVENT DATE: 20230101
